FAERS Safety Report 4599336-3 (Version None)
Quarter: 2005Q1

REPORT INFORMATION
  Report Type: 
  Country: None (occurrence: None)
  Receive Date: 20050302
  Receipt Date: 20050217
  Transmission Date: 20050727
  Serious: Yes (Other)
  Sender: FDA-Public Use
  Company Number: HQWYE392517FEB05

PATIENT
  Age: 79 Year
  Sex: Female

DRUGS (5)
  1. CORDARONE [Suspect]
     Indication: ARRHYTHMIA
     Dosage: 400 MG 1X PER 1 DAY ORAL
     Route: 048
     Dates: start: 20050201
  2. LEVOTHYROXINE SODIUM [Concomitant]
  3. KARDEGIC (ACETYLSALICYLATE LYSINE) [Concomitant]
  4. LOPRESSOR [Concomitant]
  5. ESBERIVEN (MELILOT/RUTOSIDE) [Concomitant]

REACTIONS (2)
  - RENAL FAILURE ACUTE [None]
  - TRANSAMINASES INCREASED [None]
